FAERS Safety Report 23455884 (Version 1)
Quarter: 2024Q1

REPORT INFORMATION
  Report Type: Spontaneous
  Country: US (occurrence: US)
  Receive Date: 20240130
  Receipt Date: 20240130
  Transmission Date: 20240409
  Serious: No
  Sender: FDA-Public Use
  Company Number: US-PADAGIS-2024PAD00038

PATIENT

DRUGS (6)
  1. IMIQUIMOD [Suspect]
     Active Substance: IMIQUIMOD
     Indication: Penile squamous cell carcinoma
     Dosage: EVERY 2 DAYS
     Route: 061
  2. IMIQUIMOD [Suspect]
     Active Substance: IMIQUIMOD
     Dosage: EVERY 2 DAYS
     Route: 061
     Dates: start: 20231231
  3. IMIQUIMOD [Suspect]
     Active Substance: IMIQUIMOD
     Dosage: EVERY 2 DAYS
     Route: 061
     Dates: start: 20240102
  4. IMIQUIMOD [Suspect]
     Active Substance: IMIQUIMOD
     Dosage: EVERY 2 DAYS
     Route: 061
     Dates: start: 20240104
  5. IMIQUIMOD [Suspect]
     Active Substance: IMIQUIMOD
     Dosage: EVERY 2 DAYS
     Route: 061
     Dates: start: 20230808
  6. IMIQUIMOD [Suspect]
     Active Substance: IMIQUIMOD
     Dosage: IMIQUIMOD CREAM 5% MANUFACTURED BY FOUGERA
     Route: 061

REACTIONS (4)
  - Application site pain [Unknown]
  - Inappropriate schedule of product administration [Unknown]
  - Intentional dose omission [Unknown]
  - Product use in unapproved indication [Unknown]

NARRATIVE: CASE EVENT DATE: 20231231
